FAERS Safety Report 9196009 (Version 1)
Quarter: 2013Q1

REPORT INFORMATION
  Report Type: Spontaneous
  Country: US (occurrence: None)
  Receive Date: 20120705
  Receipt Date: 20120705
  Transmission Date: 20140127
  Serious: Yes (Hospitalization)
  Sender: FDA-Public Use
  Company Number: US-CYPR-2012-000026

PATIENT
  Age: 74 Year
  Sex: Male
  Weight: 73 kg

DRUGS (6)
  1. CLOPIDOGREL\PLACEBO [Suspect]
     Indication: ANTIPLATELET THERAPY
     Route: 048
     Dates: start: 20110225, end: 20120403
  2. ASPIRIN [Suspect]
     Route: 048
     Dates: start: 20100323, end: 20110424
  3. ZOCOR [Concomitant]
  4. CARVEDILOL [Concomitant]
  5. LISINOPRIL [Concomitant]
  6. CYPHER STENT [Concomitant]

REACTIONS (1)
  - Arthropathy [None]
